FAERS Safety Report 5627137-3 (Version None)
Quarter: 2008Q1

REPORT INFORMATION
  Report Type: 
  Country: None (occurrence: None)
  Receive Date: 20080212
  Receipt Date: 20080212
  Transmission Date: 20080703
  Serious: No
  Sender: FDA-Public Use
  Company Number: None

PATIENT
  Sex: Female
  Weight: 69.8539 kg

DRUGS (3)
  1. FOSAMAX [Suspect]
     Indication: ARTHRALGIA
     Dosage: 70 MG PLUS D 2800IU ONCE WEEKLY PO
     Route: 048
     Dates: start: 20070613, end: 20071112
  2. FOSAMAX [Suspect]
     Indication: BONE PAIN
     Dosage: 70 MG PLUS D 2800IU ONCE WEEKLY PO
     Route: 048
     Dates: start: 20070613, end: 20071112
  3. FOSAMAX [Suspect]
     Indication: MYALGIA
     Dosage: 70 MG PLUS D 2800IU ONCE WEEKLY PO
     Route: 048
     Dates: start: 20070613, end: 20071112

REACTIONS (6)
  - ARTHRALGIA [None]
  - BONE PAIN [None]
  - CARDIAC DISORDER [None]
  - CARDIAC VENTRICULAR DISORDER [None]
  - CHEST PAIN [None]
  - MYALGIA [None]
